FAERS Safety Report 13277329 (Version 1)
Quarter: 2017Q1

REPORT INFORMATION
  Report Type: Spontaneous
  Country: DE (occurrence: DE)
  Receive Date: 20170228
  Receipt Date: 20170228
  Transmission Date: 20170428
  Serious: Yes (Hospitalization)
  Sender: FDA-Public Use
  Company Number: DE-PFIZER INC-2017082676

PATIENT
  Age: 31 Year
  Sex: Male

DRUGS (8)
  1. AKINETON [Interacting]
     Active Substance: BIPERIDEN HYDROCHLORIDE
     Dosage: 5 DF, 1X/DAY
     Dates: start: 20100419, end: 20100818
  2. ABILIFY [Concomitant]
     Active Substance: ARIPIPRAZOLE
     Dosage: 20 MG, 1X/DAY
     Dates: start: 20100419, end: 20100818
  3. EDRONAX [Interacting]
     Active Substance: REBOXETINE MESYLATE
     Dosage: 12 MG, 1X/DAY
     Dates: start: 20100419, end: 20100819
  4. GASTROZEPIN [Interacting]
     Active Substance: PIRENZEPINE HYDROCHLORIDE
     Dosage: 50 MG, 1X/DAY
     Dates: start: 20100419, end: 20100818
  5. NEXIUM [Concomitant]
     Active Substance: ESOMEPRAZOLE MAGNESIUM
     Dosage: 40 MG, 1X/DAY
     Dates: start: 20100419, end: 20100818
  6. LYRICA [Suspect]
     Active Substance: PREGABALIN
     Dosage: 300 MG, 1X/DAY
     Dates: start: 20100419, end: 20100818
  7. REMERGIL [Interacting]
     Active Substance: MIRTAZAPINE
     Dosage: 30 MG, DAILY
     Dates: start: 20100419, end: 20100818
  8. SOLIAN [Concomitant]
     Active Substance: AMISULPRIDE
     Dosage: 500 MG, 1X/DAY
     Dates: start: 20100419, end: 20100818

REACTIONS (2)
  - Drug interaction [Unknown]
  - Urinary hesitation [Recovered/Resolved]

NARRATIVE: CASE EVENT DATE: 20100818
